FAERS Safety Report 21265209 (Version 1)
Quarter: 2022Q3

REPORT INFORMATION
  Report Type: Spontaneous
  Country: DE (occurrence: DE)
  Receive Date: 20220829
  Receipt Date: 20220829
  Transmission Date: 20221026
  Serious: Yes (Other)
  Sender: FDA-Public Use
  Company Number: DE-NOVARTISPH-NVSC2022DE192360

PATIENT
  Age: 84 Year
  Sex: Female

DRUGS (6)
  1. CANDESARTAN [Suspect]
     Active Substance: CANDESARTAN
     Indication: Product used for unknown indication
     Dosage: 16 MG, QD (8 MG IN THE MORNING, 8 MG IN THE EVENING)
     Route: 048
  2. METOPROLOL [Suspect]
     Active Substance: METOPROLOL
     Indication: Product used for unknown indication
     Dosage: 95 MG IN THE MORNING, 95 MG IN THE EVENING
     Route: 048
  3. AMLODIPINE MALEATE [Suspect]
     Active Substance: AMLODIPINE MALEATE
     Indication: Hypertension
     Dosage: 5 MG, QD (5 MG IN THE EVENING)
     Route: 048
  4. AMLODIPINE MALEATE [Suspect]
     Active Substance: AMLODIPINE MALEATE
     Dosage: 10 MG, QD (5 MG IN THE MORNING, 5 MG IN THE EVENING; DUE TO A LOWERING OF THE BLOOD PRESSURE, DOSAGE
     Route: 048
  5. METAMIZOLE [Suspect]
     Active Substance: METAMIZOLE
     Indication: Pain
     Dosage: UNK (WHEN NEEDED)
     Route: 048
  6. ELIQUIS [Suspect]
     Active Substance: APIXABAN
     Indication: Product used for unknown indication
     Dosage: 10 MG, QD (5 MG IN THE MORNING, 5 MG IN THE EVENING)
     Route: 048

REACTIONS (6)
  - Arrhythmia [Not Recovered/Not Resolved]
  - Back pain [Not Recovered/Not Resolved]
  - Nausea [Not Recovered/Not Resolved]
  - Abdominal pain [Not Recovered/Not Resolved]
  - Splenic cyst [Unknown]
  - Pancreatic cyst [Unknown]
